FAERS Safety Report 9711310 (Version 2)
Quarter: 2013Q4

REPORT INFORMATION
  Report Type: Spontaneous
  Country: US (occurrence: US)
  Receive Date: 20131126
  Receipt Date: 20131126
  Transmission Date: 20140711
  Serious: Yes (Other)
  Sender: FDA-Public Use
  Company Number: US-BRISTOL-MYERS SQUIBB COMPANY-18748780

PATIENT
  Age: 55 Year
  Sex: Male

DRUGS (15)
  1. BYDUREON 2MG SUSPENSION [Suspect]
     Indication: TYPE 2 DIABETES MELLITUS
     Route: 058
     Dates: start: 20130101, end: 20130331
  2. METFORMIN HCL [Suspect]
     Dosage: 1DF=1000 (NO UNITS)
  3. GLYBURIDE [Suspect]
  4. JANUVIA [Concomitant]
  5. FOLIC ACID [Concomitant]
  6. METHOTREXATE [Concomitant]
  7. B COMPLEX 100 [Concomitant]
  8. CRESTOR [Concomitant]
  9. LISINOPRIL [Concomitant]
  10. METOPROLOL [Concomitant]
  11. ASA [Concomitant]
  12. PRILOSEC [Concomitant]
  13. PRILOSEC [Concomitant]
  14. AVODART [Concomitant]
  15. AMBIEN [Concomitant]

REACTIONS (2)
  - Blood glucose fluctuation [Unknown]
  - Weight decreased [Unknown]
